FAERS Safety Report 8333456-2 (Version None)
Quarter: 2012Q2

REPORT INFORMATION
  Report Type: 
  Country: None (occurrence: None)
  Receive Date: 20120503
  Receipt Date: 20120425
  Transmission Date: 20120825
  Serious: Yes (Hospitalization)
  Sender: FDA-Public Use
  Company Number: DE-NOVOPROD-343713

PATIENT
  Age: 55 Year
  Sex: Male
  Weight: 93 kg

DRUGS (11)
  1. VICTOZA [Suspect]
     Indication: TYPE 2 DIABETES MELLITUS
     Dosage: 0.6 MG, QD
     Route: 065
     Dates: start: 20090101, end: 20120125
  2. RAMIPRIL [Concomitant]
     Indication: CORONARY ARTERY DISEASE
     Dosage: 2 MG, BID
  3. PENTAERYTHRITOL TETRANITRATE [Concomitant]
     Indication: CORONARY ARTERY DISEASE
     Dosage: 80 MG, UNK
  4. TILIDIN [Concomitant]
     Indication: PRODUCT USED FOR UNKNOWN INDICATION
     Dosage: 50/4
  5. ASPIRIN [Concomitant]
     Indication: CORONARY ARTERY DISEASE
     Dosage: 100 MG, QD
  6. EZETIMIBE [Concomitant]
     Indication: HYPERLIPIDAEMIA
     Dosage: 10/40 MG, QD
  7. CIPROFLOXACIN HCL [Concomitant]
     Indication: PRODUCT USED FOR UNKNOWN INDICATION
  8. DIGITOXIN TAB [Concomitant]
     Indication: MYOCARDIAL INFARCTION
     Dosage: 0.07 MG, QD
  9. METOPROLOL TARTRATE [Concomitant]
     Indication: HYPERTENSION
     Dosage: 190 MG, QD
  10. MUSARIL [Concomitant]
     Indication: PRODUCT USED FOR UNKNOWN INDICATION
     Dosage: 50 MG, BID
  11. NOVALGIN                           /00169801/ [Concomitant]
     Indication: PRODUCT USED FOR UNKNOWN INDICATION

REACTIONS (1)
  - PANCREATITIS ACUTE [None]
